FAERS Safety Report 20036742 (Version 2)
Quarter: 2021Q4

REPORT INFORMATION
  Report Type: Spontaneous
  Country: RO (occurrence: RO)
  Receive Date: 20211105
  Receipt Date: 20211111
  Transmission Date: 20220303
  Serious: Yes (Other)
  Sender: FDA-Public Use
  Company Number: RO-Phoenix Labs Unlimited Company-RO-P18030-21-00112

PATIENT
  Age: 54 Year
  Sex: Female

DRUGS (4)
  1. ZOLEDRONIC ACID [Suspect]
     Active Substance: ZOLEDRONIC ACID
     Indication: HER2 negative breast cancer
     Dosage: UNK
     Dates: start: 201702, end: 201706
  2. ZOLEDRONIC ACID [Suspect]
     Active Substance: ZOLEDRONIC ACID
     Dosage: UNK
     Dates: start: 201707, end: 201902
  3. EPIRUBICIN [Suspect]
     Active Substance: EPIRUBICIN
     Indication: HER2 negative breast cancer
     Dosage: UNK
     Dates: start: 201702, end: 201706
  4. CYCLOPHOSPHAMIDE [Suspect]
     Active Substance: CYCLOPHOSPHAMIDE
     Indication: HER2 negative breast cancer
     Dosage: UNK
     Dates: start: 201702, end: 201706

REACTIONS (3)
  - Metastases to stomach [Unknown]
  - Metastases to heart [Unknown]
  - Disease progression [Unknown]

NARRATIVE: CASE EVENT DATE: 20190301
